FAERS Safety Report 7220906-8 (Version None)
Quarter: 2011Q1

REPORT INFORMATION
  Report Type: 
  Country: None (occurrence: None)
  Receive Date: 20110112
  Receipt Date: 20101103
  Transmission Date: 20110831
  Serious: No
  Sender: FDA-Public Use
  Company Number: A0890547A

PATIENT
  Age: 72 Year
  Sex: Male

DRUGS (4)
  1. METOPROLOL [Concomitant]
  2. LISINOPRIL [Concomitant]
  3. JALYN [Suspect]
     Dosage: 1CAP PER DAY
     Route: 048
     Dates: start: 20101103
  4. PREDNISOLONE [Concomitant]

REACTIONS (1)
  - OVERDOSE [None]
